FAERS Safety Report 6601303-2 (Version None)
Quarter: 2010Q1

REPORT INFORMATION
  Report Type: 
  Country: None (occurrence: None)
  Receive Date: 20100225
  Receipt Date: 20100223
  Transmission Date: 20100710
  Serious: Yes (Other)
  Sender: FDA-Public Use
  Company Number: DE-SANOFI-AVENTIS-2010SA007764

PATIENT
  Age: 65 Year
  Sex: Female

DRUGS (10)
  1. MULTAQ [Suspect]
     Indication: ATRIAL FIBRILLATION
     Route: 048
     Dates: start: 20100111, end: 20100204
  2. MARCUMAR [Concomitant]
     Indication: ATRIAL FIBRILLATION
     Dosage: DOSAGE: 1/2-0-1
     Route: 065
     Dates: start: 20100101
  3. CLEXANE [Concomitant]
     Indication: ATRIAL FIBRILLATION
     Route: 058
     Dates: start: 20100101
  4. NEBILET [Concomitant]
     Indication: ATRIAL FIBRILLATION
     Dosage: DOSAGE: 1/2-0-1/2
     Route: 048
     Dates: start: 20100101
  5. COUMADIN [Concomitant]
     Indication: DRUG USE FOR UNKNOWN INDICATION
     Route: 048
  6. PULMICORT [Concomitant]
     Dosage: DOSAGE: 1-0-1
     Route: 048
     Dates: start: 20100101
  7. PULMICORT [Concomitant]
     Indication: ASTHMA
     Dosage: DOSAGE: 1-0-1
     Route: 048
     Dates: start: 20100101
  8. ANTI-ASTHMATICS [Concomitant]
     Dosage: DOSAGE: 1-0-0
     Route: 048
     Dates: start: 20100101
  9. ANTI-ASTHMATICS [Concomitant]
     Indication: ASTHMA
     Dosage: DOSAGE: 1-0-0
     Route: 048
     Dates: start: 20100101
  10. BERODUAL [Concomitant]
     Indication: DRUG USE FOR UNKNOWN INDICATION
     Route: 065

REACTIONS (5)
  - ALANINE AMINOTRANSFERASE INCREASED [None]
  - ASPARTATE AMINOTRANSFERASE INCREASED [None]
  - ATRIAL FIBRILLATION [None]
  - GAMMA-GLUTAMYLTRANSFERASE INCREASED [None]
  - TRANSAMINASES INCREASED [None]
